FAERS Safety Report 6853505-8 (Version None)
Quarter: 2010Q3

REPORT INFORMATION
  Report Type: 
  Country: None (occurrence: None)
  Receive Date: 20100717
  Receipt Date: 20071207
  Transmission Date: 20110219
  Serious: No
  Sender: FDA-Public Use
  Company Number: US-PFIZER INC-2007105683

PATIENT
  Sex: Female
  Weight: 77.3 kg

DRUGS (6)
  1. CHANTIX [Suspect]
     Indication: SMOKING CESSATION THERAPY
     Route: 048
     Dates: start: 20070701, end: 20070101
  2. LEVOXYL [Concomitant]
  3. ATENOLOL [Concomitant]
  4. HYDROCHLOROTHIAZIDE [Concomitant]
  5. LIPITOR [Concomitant]
  6. PREMARIN [Concomitant]

REACTIONS (2)
  - DYSPEPSIA [None]
  - NAUSEA [None]
